FAERS Safety Report 6754948-3 (Version None)
Quarter: 2010Q2

REPORT INFORMATION
  Report Type: 
  Country: None (occurrence: None)
  Receive Date: 20100602
  Receipt Date: 20100520
  Transmission Date: 20101027
  Serious: Yes (Hospitalization, Disabling)
  Sender: FDA-Public Use
  Company Number: 012587

PATIENT
  Age: 78 Year
  Sex: Female

DRUGS (1)
  1. PREDNISOLONE [Suspect]
     Indication: TEMPORAL ARTERITIS
     Dosage: 80 MG QD,

REACTIONS (8)
  - ASPERGILLOSIS [None]
  - ATROPHY OF GLOBE [None]
  - BLINDNESS UNILATERAL [None]
  - ENDOPHTHALMITIS [None]
  - FIBROSIS [None]
  - INTRAOCULAR PRESSURE DECREASED [None]
  - UVEITIS [None]
  - VITRITIS [None]
